FAERS Safety Report 19982815 (Version 1)
Quarter: 2021Q4

REPORT INFORMATION
  Report Type: Spontaneous
  Country: PT (occurrence: PT)
  Receive Date: 20211021
  Receipt Date: 20211021
  Transmission Date: 20220303
  Serious: Yes (Hospitalization, Other)
  Sender: FDA-Public Use
  Company Number: PT-LUPIN PHARMACEUTICALS INC.-2021-20119

PATIENT
  Age: 53 Year
  Sex: Male

DRUGS (2)
  1. MORPHINE [Suspect]
     Active Substance: MORPHINE
     Indication: Epidural analgesia
     Dosage: 20 MILLIGRAM
     Route: 008
  2. ROPIVACAINE. [Concomitant]
     Active Substance: ROPIVACAINE HYDROCHLORIDE
     Indication: Analgesic therapy
     Dosage: 12 MILLILITER
     Route: 065

REACTIONS (2)
  - Respiratory depression [Recovering/Resolving]
  - Accidental exposure to product [Unknown]
